FAERS Safety Report 14828451 (Version 1)
Quarter: 2018Q2

REPORT INFORMATION
  Report Type: Spontaneous
  Country: US (occurrence: US)
  Receive Date: 20180430
  Receipt Date: 20180430
  Transmission Date: 20180711
  Serious: No
  Sender: FDA-Public Use
  Company Number: US-HORIZON-PEN-0308-2018

PATIENT
  Age: 39 Year
  Sex: Female

DRUGS (4)
  1. COLESTIPOL [Concomitant]
     Active Substance: COLESTIPOL
  2. FLUVOXIN [Concomitant]
  3. CLONAZEPAM. [Concomitant]
     Active Substance: CLONAZEPAM
  4. PENNSAID [Suspect]
     Active Substance: DICLOFENAC SODIUM
     Indication: ARTHROPATHY
     Dosage: TWICE A DAY
     Dates: start: 20180419

REACTIONS (2)
  - Application site dryness [Unknown]
  - Application site erythema [Unknown]

NARRATIVE: CASE EVENT DATE: 20180419
